FAERS Safety Report 24046741 (Version 1)
Quarter: 2024Q3

REPORT INFORMATION
  Report Type: Other
  Country: JP (occurrence: JP)
  Receive Date: 20240703
  Receipt Date: 20240703
  Transmission Date: 20241017
  Serious: Yes (Life-Threatening)
  Sender: B BRAUN
  Company Number: JP-B.Braun Medical Inc.-2158811

PATIENT
  Age: 66 Year
  Sex: Male

DRUGS (11)
  1. MEROPENEM [Suspect]
     Active Substance: MEROPENEM
     Indication: Sepsis
  2. VANCOMYCIN [Suspect]
     Active Substance: VANCOMYCIN
  3. LOXOPROFEN SODIUM DIHYDRATE [Concomitant]
     Active Substance: LOXOPROFEN SODIUM DIHYDRATE
  4. POLAPREZINC [Concomitant]
     Active Substance: POLAPREZINC
  5. PREGABALIN [Concomitant]
     Active Substance: PREGABALIN
  6. LANTHANUM CARBONATE [Concomitant]
     Active Substance: LANTHANUM CARBONATE
  7. TETRAFERRIC TRICITRATE DECAHYDRATE [Concomitant]
     Active Substance: TETRAFERRIC TRICITRATE DECAHYDRATE
  8. NALFURAFINE [Concomitant]
  9. LANSOPRAZOLE [Concomitant]
     Active Substance: LANSOPRAZOLE
  10. CLONAZEPAM [Concomitant]
     Active Substance: CLONAZEPAM
  11. CALCIUM POLYSTYRENE SULFONATE [Concomitant]
     Active Substance: CALCIUM POLYSTYRENE SULFONATE

REACTIONS (1)
  - Drug ineffective [Unknown]
